FAERS Safety Report 10725653 (Version 1)
Quarter: 2015Q1

REPORT INFORMATION
  Report Type: Spontaneous
  Country: US (occurrence: None)
  Receive Date: 20150116
  Receipt Date: 20150116
  Transmission Date: 20150721
  Serious: Yes (Life-Threatening, Hospitalization)
  Sender: FDA-Public Use
  Company Number: None

PATIENT
  Age: 48 Year
  Sex: Male
  Weight: 100.3 kg

DRUGS (1)
  1. MIRTAZAPINE. [Suspect]
     Active Substance: MIRTAZAPINE
     Indication: DEPRESSION
     Route: 048
     Dates: start: 20140214, end: 20140318

REACTIONS (5)
  - Xanthoma [None]
  - Hypertriglyceridaemia [None]
  - Hyperglycaemia [None]
  - Tachycardia [None]
  - Rash [None]

NARRATIVE: CASE EVENT DATE: 20140321
